FAERS Safety Report 20997174 (Version 1)
Quarter: 2022Q2

REPORT INFORMATION
  Report Type: Spontaneous
  Country: US (occurrence: US)
  Receive Date: 20220623
  Receipt Date: 20220623
  Transmission Date: 20220720
  Serious: Yes (Other)
  Sender: FDA-Public Use
  Company Number: US-SAMSUNG BIOEPIS-SB-2022-15370

PATIENT

DRUGS (1)
  1. ONTRUZANT [Suspect]
     Active Substance: TRASTUZUMAB-DTTB
     Indication: Product used for unknown indication
     Dosage: UNKNOWN
     Route: 042

REACTIONS (4)
  - Pyrexia [Unknown]
  - Tremor [Unknown]
  - Vomiting [Unknown]
  - Chills [Unknown]
